FAERS Safety Report 20055142 (Version 1)
Quarter: 2021Q4

REPORT INFORMATION
  Report Type: Spontaneous
  Country: CA (occurrence: CA)
  Receive Date: 20211110
  Receipt Date: 20211110
  Transmission Date: 20220303
  Serious: Yes (Other)
  Sender: FDA-Public Use
  Company Number: CA-PFIZER INC-202101484530

PATIENT
  Age: 59 Year
  Sex: Male

DRUGS (3)
  1. SPIRONOLACTONE [Suspect]
     Active Substance: SPIRONOLACTONE
     Indication: Ascites
     Dosage: 100 MG
  2. FUROSEMIDE [Suspect]
     Active Substance: FUROSEMIDE
     Indication: Ascites
     Dosage: 40 MG
  3. RAMIPRIL [Suspect]
     Active Substance: RAMIPRIL
     Indication: Ascites
     Dosage: 5 MG

REACTIONS (5)
  - Product prescribing error [Unknown]
  - Acute kidney injury [Unknown]
  - Asthenia [Unknown]
  - Confusional state [Unknown]
  - Hypotension [Unknown]
